FAERS Safety Report 8978509 (Version 2)
Quarter: 2013Q1

REPORT INFORMATION
  Report Type: Spontaneous
  Country: US (occurrence: US)
  Receive Date: 20121221
  Receipt Date: 20130117
  Transmission Date: 20140127
  Serious: Yes (Death, Other)
  Sender: FDA-Public Use
  Company Number: US-PFIZER INC-2012318547

PATIENT
  Age: 65 Year
  Sex: Male
  Weight: 80.73 kg

DRUGS (7)
  1. REVATIO [Suspect]
     Dosage: UNK, 3X/DAY
     Route: 048
  2. COUMADIN [Concomitant]
     Dosage: UNK
  3. SOMA [Concomitant]
     Indication: PAIN
     Dosage: 350 MG
  4. ALLOPURINOL [Concomitant]
     Indication: GOUT
     Dosage: 300 MG, UNK
  5. LORCET [Concomitant]
     Dosage: UNK
  6. PLAVIX [Concomitant]
     Dosage: 75 MG, UNK
  7. ASPIRIN [Concomitant]
     Dosage: 81 MG, 1X/DAY

REACTIONS (3)
  - Cardiac arrest [Fatal]
  - Renal impairment [Unknown]
  - Malaise [Unknown]
